FAERS Safety Report 8881421 (Version 2)
Quarter: 2013Q2

REPORT INFORMATION
  Report Type: Spontaneous
  Country: FR (occurrence: FR)
  Receive Date: 20121102
  Receipt Date: 20130426
  Transmission Date: 20140414
  Serious: Yes (Hospitalization)
  Sender: FDA-Public Use
  Company Number: FR-JNJFOC-20121016765

PATIENT
  Age: 70 Year
  Sex: Female
  Weight: 100 kg

DRUGS (8)
  1. XARELTO [Suspect]
     Indication: CEREBROVASCULAR ACCIDENT PROPHYLAXIS
     Route: 048
     Dates: start: 20120927, end: 201210
  2. XARELTO [Suspect]
     Indication: ATRIAL FIBRILLATION
     Route: 048
     Dates: start: 20120927, end: 201210
  3. DETENSIEL [Concomitant]
     Indication: ATRIAL FIBRILLATION
     Route: 048
     Dates: start: 20120927
  4. ZESTORETIC [Concomitant]
     Indication: HYPERTENSION
     Route: 048
  5. ESOMEPRAZOLE [Concomitant]
     Route: 048
  6. CORDARONE [Concomitant]
     Indication: ARRHYTHMIA
     Route: 048
     Dates: start: 20121016
  7. LASILIX [Concomitant]
     Indication: DIURETIC THERAPY
     Route: 048
     Dates: start: 20121005, end: 20121015
  8. AMLODIPINE [Concomitant]
     Indication: HYPERTENSION
     Route: 048
     Dates: start: 20121015

REACTIONS (2)
  - Cardiac failure acute [Recovered/Resolved]
  - Renal failure acute [Recovered/Resolved]
